FAERS Safety Report 6309504-8 (Version None)
Quarter: 2009Q3

REPORT INFORMATION
  Report Type: 
  Country: None (occurrence: None)
  Receive Date: 20090814
  Receipt Date: 20090807
  Transmission Date: 20100115
  Serious: Yes (Hospitalization)
  Sender: FDA-Public Use
  Company Number: FR-B.I. PHARMACEUTICALS,INC./RIDGEFIELD-2009-DE-05205BY

PATIENT
  Sex: Male

DRUGS (2)
  1. PRITOR PLUS [Suspect]
     Indication: HYPERTENSION
     Route: 048
     Dates: start: 20090316, end: 20090701
  2. PRITOR [Suspect]
     Indication: HYPERTENSION
     Route: 048
     Dates: start: 20081212, end: 20090316

REACTIONS (3)
  - BLISTER [None]
  - DERMATITIS BULLOUS [None]
  - RASH ERYTHEMATOUS [None]
